FAERS Safety Report 14020219 (Version 2)
Quarter: 2017Q4

REPORT INFORMATION
  Report Type: Report from Study
  Country: US (occurrence: US)
  Receive Date: 20170928
  Receipt Date: 20171009
  Transmission Date: 20180321
  Serious: Yes (Other)
  Sender: FDA-Public Use
  Company Number: US-PFIZER INC-2017411959

PATIENT
  Age: 28 Year
  Sex: Female
  Weight: 45.99 kg

DRUGS (1)
  1. SUTENT [Suspect]
     Active Substance: SUNITINIB MALATE
     Dosage: 37.5 MG/DAY
     Route: 048

REACTIONS (1)
  - Febrile neutropenia [Recovered/Resolved]
